FAERS Safety Report 13188874 (Version 1)
Quarter: 2017Q1

REPORT INFORMATION
  Report Type: Spontaneous
  Country: US (occurrence: US)
  Receive Date: 20170203
  Receipt Date: 20170203
  Transmission Date: 20170428
  Serious: Yes (Life-Threatening, Hospitalization)
  Sender: FDA-Public Use
  Company Number: None

PATIENT
  Age: 71 Year
  Sex: Male
  Weight: 75.6 kg

DRUGS (12)
  1. PRENATAL VITAMINS PLUS [Concomitant]
     Active Substance: .ALPHA.-TOCOPHEROL ACETATE, DL-\ASCORBIC ACID\CALCIUM\CHOLECALCIFEROL\COPPER\CYANOCOBALAMIN\FOLIC ACID\IRON\NIACIN\PYRIDOXINE\RIBOFLAVIN\THIAMINE MONONITRATE\VITAMIN A\ZINC
  2. ASPIRIN. [Concomitant]
     Active Substance: ASPIRIN
  3. GLUCOSE BLOOD STRIPS [Concomitant]
  4. PANTOPRAZOLE 40 MG TBEC (PROTONIX) [Concomitant]
  5. PRAVASTATIN SODIUM. [Concomitant]
     Active Substance: PRAVASTATIN SODIUM
  6. METOPROLOL. [Concomitant]
     Active Substance: METOPROLOL
  7. PROVENTAL HFA [Concomitant]
  8. ERGOCALCIFEROL 50000 UNIT CAPSULE (VITAMIN D2 (DRISDOL) [Concomitant]
  9. TRIAMCINOLONE ACETONIDE. [Concomitant]
     Active Substance: TRIAMCINOLONE ACETONIDE
  10. PRADAXA [Suspect]
     Active Substance: DABIGATRAN ETEXILATE MESYLATE
     Indication: HEART RATE IRREGULAR
     Dosage: ?          QUANTITY:1 CAPSULE(S);?
     Route: 048
     Dates: start: 20161209, end: 20161220
  11. ELIQUIS [Concomitant]
     Active Substance: APIXABAN
  12. ONE TOUCH LANCETS [Concomitant]

REACTIONS (2)
  - Dyspepsia [None]
  - Haematochezia [None]

NARRATIVE: CASE EVENT DATE: 20161220
